FAERS Safety Report 16451036 (Version 1)
Quarter: 2019Q3

REPORT INFORMATION
  Report Type: Spontaneous
  Country: US (occurrence: US)
  Receive Date: 20190618
  Receipt Date: 20190618
  Transmission Date: 20191004
  Serious: Yes (Death)
  Sender: FDA-Public Use
  Company Number: None

PATIENT
  Age: 93 Year
  Sex: Male
  Weight: 79.2 kg

DRUGS (1)
  1. BEXAROTENE. [Suspect]
     Active Substance: BEXAROTENE
     Indication: LYMPHOMA
     Route: 048
     Dates: start: 20170630, end: 20190618

REACTIONS (1)
  - Death [None]

NARRATIVE: CASE EVENT DATE: 20190618
